FAERS Safety Report 10248624 (Version 1)
Quarter: 2014Q2

REPORT INFORMATION
  Report Type: Spontaneous
  Country: US (occurrence: None)
  Receive Date: 20140617
  Receipt Date: 20140617
  Transmission Date: 20141212
  Serious: Yes (Other)
  Sender: FDA-Public Use
  Company Number: None

PATIENT
  Age: 9 Year
  Sex: Male
  Weight: 51.26 kg

DRUGS (2)
  1. DEPAKOTE ER [Suspect]
     Indication: CONVULSION
     Dosage: 2 QAM PO; 3 QPM PO
     Route: 048
     Dates: start: 2011
  2. DEPAKOTE ER [Suspect]
     Indication: OBSESSIVE-COMPULSIVE DISORDER
     Dosage: 2 QAM PO; 3 QPM PO
     Route: 048
     Dates: start: 2011

REACTIONS (3)
  - Convulsion [None]
  - Condition aggravated [None]
  - Movement disorder [None]
